FAERS Safety Report 12808132 (Version 13)
Quarter: 2020Q1

REPORT INFORMATION
  Report Type: Spontaneous
  Country: US (occurrence: US)
  Receive Date: 20161004
  Receipt Date: 20200228
  Transmission Date: 20200409
  Serious: Yes (Hospitalization, Other)
  Sender: FDA-Public Use
  Company Number: US-PFIZER INC-2016460329

PATIENT
  Age: 81 Year
  Sex: Female
  Weight: 93 kg

DRUGS (13)
  1. DOXEPIN [Concomitant]
     Active Substance: DOXEPIN
     Indication: SLEEP DISORDER
     Dosage: 25 MG, 1X/DAY [ONE EVERY NIGHT]
  2. DOXEPIN [Concomitant]
     Active Substance: DOXEPIN
     Indication: BRADYPHRENIA
  3. LYRICA [Suspect]
     Active Substance: PREGABALIN
     Indication: ARTHRITIS
     Dosage: 50 MG, 3X/DAY
     Route: 048
     Dates: start: 20130304
  4. LYRICA [Suspect]
     Active Substance: PREGABALIN
     Indication: FIBROMYALGIA
  5. PANTOPRAZOLE [Concomitant]
     Active Substance: PANTOPRAZOLE
     Indication: FLATULENCE
     Dosage: 40 MG, 2X/DAY
     Route: 048
     Dates: start: 2016
  6. LYRICA [Suspect]
     Active Substance: PREGABALIN
     Indication: NEURALGIA
  7. ADVAIR HFA [Concomitant]
     Active Substance: FLUTICASONE PROPIONATE\SALMETEROL XINAFOATE
     Dosage: UNK
  8. LYRICA [Suspect]
     Active Substance: PREGABALIN
     Indication: PAIN
     Dosage: UNK, 4X/DAY
     Route: 048
     Dates: start: 2013
  9. PANTOPRAZOLE [Concomitant]
     Active Substance: PANTOPRAZOLE
     Indication: HIATUS HERNIA
  10. DILTIZEM [Concomitant]
     Indication: BLOOD PRESSURE ABNORMAL
     Dosage: 120 MG, DAILY [EVERY DAY]
  11. LYRICA [Suspect]
     Active Substance: PREGABALIN
     Indication: PAIN IN EXTREMITY
     Dosage: 50 MG, 3X/DAY
     Route: 048
  12. LORAZEPAM. [Concomitant]
     Active Substance: LORAZEPAM
     Indication: SLEEP DISORDER
     Dosage: 1.5 MG, 1X/DAY [EVERY NIGHT]
  13. LYRICA [Suspect]
     Active Substance: PREGABALIN
     Indication: LUMBAR SPINAL STENOSIS
     Dosage: 75 MG, 3X/DAY
     Route: 048

REACTIONS (16)
  - Pain [Unknown]
  - Stress [Unknown]
  - Weight decreased [Unknown]
  - Atrial fibrillation [Recovering/Resolving]
  - Fall [Unknown]
  - Product dispensing error [Unknown]
  - Hallucination [Unknown]
  - Product dose omission [Unknown]
  - Intentional product use issue [Unknown]
  - Fluid retention [Recovering/Resolving]
  - Hypoaesthesia [Unknown]
  - Anger [Recovering/Resolving]
  - Pain in extremity [Recovering/Resolving]
  - Pharyngeal disorder [Unknown]
  - Pneumonia bacterial [Recovered/Resolved]
  - Musculoskeletal stiffness [Recovering/Resolving]

NARRATIVE: CASE EVENT DATE: 2016
